FAERS Safety Report 5988126-2 (Version None)
Quarter: 2008Q4

REPORT INFORMATION
  Report Type: 
  Country: None (occurrence: None)
  Receive Date: 20081209
  Receipt Date: 20081209
  Transmission Date: 20090506
  Serious: Yes (Hospitalization)
  Sender: FDA-Public Use
  Company Number: None

PATIENT
  Sex: Male
  Weight: 118 kg

DRUGS (3)
  1. CARBOPLATIN [Suspect]
     Indication: TONGUE NEOPLASM MALIGNANT STAGE UNSPECIFIED
     Dosage: AUC 6 Q4 WKS IV
     Route: 042
     Dates: start: 20081118
  2. TAXOL [Suspect]
     Indication: TONGUE NEOPLASM MALIGNANT STAGE UNSPECIFIED
     Dosage: 100MG/M2 IV QWK
     Route: 042
     Dates: start: 20081202
  3. CETUXIMAB [Suspect]
     Indication: TONGUE NEOPLASM MALIGNANT STAGE UNSPECIFIED
     Dosage: 250MG/M2 IV QWK
     Route: 042
     Dates: start: 20081202

REACTIONS (2)
  - CELLULITIS [None]
  - OEDEMA PERIPHERAL [None]
